FAERS Safety Report 8259105-X (Version None)
Quarter: 2012Q2

REPORT INFORMATION
  Report Type: 
  Country: None (occurrence: None)
  Receive Date: 20120404
  Receipt Date: 20120328
  Transmission Date: 20120825
  Serious: Yes (Hospitalization)
  Sender: FDA-Public Use
  Company Number: SV-ROCHE-1054723

PATIENT
  Age: 82 Year
  Sex: Female
  Weight: 48.578 kg

DRUGS (3)
  1. ETHALFA [Concomitant]
  2. CALCIUM CARBONATE [Concomitant]
  3. BONIVA [Suspect]
     Indication: OSTEOPOROSIS
     Route: 048
     Dates: start: 20111103, end: 20111103

REACTIONS (5)
  - CARDIOGENIC SHOCK [None]
  - ARRHYTHMIA [None]
  - NAUSEA [None]
  - VOMITING [None]
  - DIARRHOEA [None]
